FAERS Safety Report 7055252-9 (Version None)
Quarter: 2010Q4

REPORT INFORMATION
  Report Type: 
  Country: None (occurrence: None)
  Receive Date: 20101021
  Receipt Date: 20101011
  Transmission Date: 20110411
  Serious: Yes (Hospitalization)
  Sender: FDA-Public Use
  Company Number: PHFR2010GB01335

PATIENT
  Sex: Male

DRUGS (6)
  1. CLOZARIL [Suspect]
     Indication: SCHIZOPHRENIA
     Dosage: 450 MG, UNK
     Route: 048
     Dates: start: 19971024
  2. RAMIPRIL [Concomitant]
     Dosage: 5 MG, UNK
     Route: 048
  3. CITALOPRAM HYDROBROMIDE [Concomitant]
     Dosage: 60 MG, UNK
     Route: 048
  4. FENOFIBRATE [Concomitant]
     Dosage: 200 MG, UNK
     Route: 048
  5. METFORMIN [Concomitant]
     Dosage: 1500 MG, UNK
     Route: 048
  6. GLICLAZIDE [Concomitant]
     Dosage: 160 MG, UNK
     Route: 048

REACTIONS (4)
  - ABDOMINAL PAIN [None]
  - HYPERGLYCAEMIA [None]
  - PANCREATITIS ACUTE [None]
  - TYPE 2 DIABETES MELLITUS [None]
